FAERS Safety Report 14147385 (Version 7)
Quarter: 2022Q4

REPORT INFORMATION
  Report Type: Spontaneous
  Country: US (occurrence: None)
  Receive Date: 20171101
  Receipt Date: 20221125
  Transmission Date: 20230113
  Serious: Yes (Disabling, Other)
  Sender: FDA-Public Use
  Company Number: 2017SF10090

PATIENT
  Age: 24630 Day
  Sex: Female
  Weight: 68 kg

DRUGS (113)
  1. PRILOSEC OTC [Suspect]
     Active Substance: OMEPRAZOLE MAGNESIUM
     Indication: Gastrooesophageal reflux disease
     Route: 048
     Dates: start: 200908, end: 201002
  2. PRILOSEC OTC [Suspect]
     Active Substance: OMEPRAZOLE MAGNESIUM
     Indication: Peptic ulcer
     Route: 048
     Dates: start: 200908, end: 201002
  3. PRILOSEC OTC [Suspect]
     Active Substance: OMEPRAZOLE MAGNESIUM
     Indication: Gastric disorder
     Route: 048
     Dates: start: 200908, end: 201002
  4. PRILOSEC OTC [Suspect]
     Active Substance: OMEPRAZOLE MAGNESIUM
     Indication: Gastrooesophageal reflux disease
     Route: 048
     Dates: start: 200908, end: 201001
  5. PRILOSEC OTC [Suspect]
     Active Substance: OMEPRAZOLE MAGNESIUM
     Indication: Peptic ulcer
     Route: 048
     Dates: start: 200908, end: 201001
  6. PRILOSEC OTC [Suspect]
     Active Substance: OMEPRAZOLE MAGNESIUM
     Indication: Gastric disorder
     Route: 048
     Dates: start: 200908, end: 201001
  7. PRILOSEC OTC [Suspect]
     Active Substance: OMEPRAZOLE MAGNESIUM
     Indication: Gastrooesophageal reflux disease
     Route: 048
     Dates: start: 20091031
  8. PRILOSEC OTC [Suspect]
     Active Substance: OMEPRAZOLE MAGNESIUM
     Indication: Peptic ulcer
     Route: 048
     Dates: start: 20091031
  9. PRILOSEC OTC [Suspect]
     Active Substance: OMEPRAZOLE MAGNESIUM
     Indication: Gastric disorder
     Route: 048
     Dates: start: 20091031
  10. NEXIUM [Suspect]
     Active Substance: ESOMEPRAZOLE MAGNESIUM
     Indication: Gastrooesophageal reflux disease
     Route: 048
     Dates: start: 2009
  11. OMEPRAZOLE [Suspect]
     Active Substance: OMEPRAZOLE
     Indication: Gastrooesophageal reflux disease
     Dosage: GENERIC
     Route: 065
     Dates: start: 201003, end: 201603
  12. OMEPRAZOLE [Suspect]
     Active Substance: OMEPRAZOLE
     Indication: Peptic ulcer
     Dosage: GENERIC
     Route: 065
     Dates: start: 201003, end: 201603
  13. OMEPRAZOLE [Suspect]
     Active Substance: OMEPRAZOLE
     Indication: Gastric disorder
     Dosage: GENERIC
     Route: 065
     Dates: start: 201003, end: 201603
  14. OMEPRAZOLE [Suspect]
     Active Substance: OMEPRAZOLE
     Indication: Gastrooesophageal reflux disease
     Dosage: GENERIC
     Route: 048
     Dates: start: 20100303
  15. OMEPRAZOLE [Suspect]
     Active Substance: OMEPRAZOLE
     Indication: Peptic ulcer
     Dosage: GENERIC
     Route: 048
     Dates: start: 20100303
  16. OMEPRAZOLE [Suspect]
     Active Substance: OMEPRAZOLE
     Indication: Gastric disorder
     Dosage: GENERIC
     Route: 048
     Dates: start: 20100303
  17. OMEPRAZOLE [Suspect]
     Active Substance: OMEPRAZOLE
     Indication: Gastrooesophageal reflux disease
     Dosage: GENERIC
     Route: 048
     Dates: start: 20160721
  18. OMEPRAZOLE [Suspect]
     Active Substance: OMEPRAZOLE
     Indication: Peptic ulcer
     Dosage: GENERIC
     Route: 048
     Dates: start: 20160721
  19. OMEPRAZOLE [Suspect]
     Active Substance: OMEPRAZOLE
     Indication: Gastric disorder
     Dosage: GENERIC
     Route: 048
     Dates: start: 20160721
  20. OMEPRAZOLE [Suspect]
     Active Substance: OMEPRAZOLE
     Indication: Gastrooesophageal reflux disease
     Dosage: GENERIC
     Route: 065
     Dates: start: 1998, end: 2015
  21. OMEPRAZOLE [Suspect]
     Active Substance: OMEPRAZOLE
     Indication: Peptic ulcer
     Dosage: GENERIC
     Route: 065
     Dates: start: 1998, end: 2015
  22. OMEPRAZOLE [Suspect]
     Active Substance: OMEPRAZOLE
     Indication: Gastric disorder
     Dosage: GENERIC
     Route: 065
     Dates: start: 1998, end: 2015
  23. OMEPRAZOLE [Suspect]
     Active Substance: OMEPRAZOLE
     Indication: Gastrooesophageal reflux disease
     Dosage: GENERIC
     Route: 065
     Dates: start: 201003, end: 201604
  24. OMEPRAZOLE [Suspect]
     Active Substance: OMEPRAZOLE
     Indication: Peptic ulcer
     Dosage: GENERIC
     Route: 065
     Dates: start: 201003, end: 201604
  25. OMEPRAZOLE [Suspect]
     Active Substance: OMEPRAZOLE
     Indication: Gastric disorder
     Dosage: GENERIC
     Route: 065
     Dates: start: 201003, end: 201604
  26. OMEPRAZOLE [Suspect]
     Active Substance: OMEPRAZOLE
     Indication: Gastrooesophageal reflux disease
     Dosage: GENERIC
     Route: 065
     Dates: start: 2021, end: 2022
  27. OMEPRAZOLE [Suspect]
     Active Substance: OMEPRAZOLE
     Indication: Peptic ulcer
     Dosage: GENERIC
     Route: 065
     Dates: start: 2021, end: 2022
  28. OMEPRAZOLE [Suspect]
     Active Substance: OMEPRAZOLE
     Indication: Gastric disorder
     Dosage: GENERIC
     Route: 065
     Dates: start: 2021, end: 2022
  29. PANTOPRAZOLE [Suspect]
     Active Substance: PANTOPRAZOLE
     Indication: Gastrooesophageal reflux disease
     Route: 065
     Dates: start: 2017, end: 2018
  30. PANTOPRAZOLE [Suspect]
     Active Substance: PANTOPRAZOLE
     Indication: Gastrooesophageal reflux disease
     Route: 065
     Dates: start: 20181005
  31. LOSARTAN [Concomitant]
     Active Substance: LOSARTAN
     Indication: Blood pressure abnormal
     Route: 065
     Dates: start: 2010
  32. VICODIN [Concomitant]
     Active Substance: ACETAMINOPHEN\HYDROCODONE BITARTRATE
     Indication: Arthralgia
     Route: 065
     Dates: start: 2013, end: 2018
  33. IBUPROFEN [Concomitant]
     Active Substance: IBUPROFEN
     Indication: Arthralgia
     Route: 065
  34. LOVASTATIN [Concomitant]
     Active Substance: LOVASTATIN
     Dosage: 40.0MG UNKNOWN
     Route: 048
  35. VIRT-CAP [Concomitant]
     Indication: Vitamin supplementation
     Route: 065
     Dates: start: 2017
  36. SODIUM CITRATE/ALGELDRATE/POTASSIUM BICARBONATE/SODIUM BICARBONATE/ACE [Concomitant]
     Indication: Renal disorder
     Route: 065
     Dates: start: 201708
  37. CLOPIDOGREL [Concomitant]
     Active Substance: CLOPIDOGREL BISULFATE
     Indication: Blood disorder
     Route: 065
     Dates: start: 201709
  38. ALLOPURINOL [Concomitant]
     Active Substance: ALLOPURINOL
     Indication: Blood disorder
     Route: 065
     Dates: start: 201709
  39. METOPROLOL [Concomitant]
     Active Substance: METOPROLOL
     Indication: Blood disorder
     Route: 065
     Dates: start: 201709
  40. TUMS [Concomitant]
     Active Substance: CALCIUM CARBONATE
     Dosage: 1000.0MG UNKNOWN
     Route: 065
     Dates: start: 201712
  41. NAPROXEN [Concomitant]
     Active Substance: NAPROXEN
  42. IPRATROPIUM [Concomitant]
     Active Substance: IPRATROPIUM
  43. TORSEMIDE [Concomitant]
     Active Substance: TORSEMIDE
  44. ZOVIRAX [Concomitant]
     Active Substance: ACYCLOVIR
  45. AMLODIPINE [Concomitant]
     Active Substance: AMLODIPINE BESYLATE
     Route: 065
     Dates: start: 20181005
  46. ASPIRIN [Concomitant]
     Active Substance: ASPIRIN
     Route: 065
     Dates: start: 20181005
  47. ALBUMIN NOS/DARBEPOETIN ALFA [Concomitant]
     Route: 065
     Dates: start: 20181005
  48. DOCUSATE [Concomitant]
     Active Substance: DOCUSATE
     Route: 065
     Dates: start: 20181005
  49. FERROUS SULFATE [Concomitant]
     Active Substance: FERROUS SULFATE
     Route: 065
     Dates: start: 20181005
  50. FOLIC ACID [Concomitant]
     Active Substance: FOLIC ACID
     Route: 065
     Dates: start: 20181005
  51. FUROSEMIDE [Concomitant]
     Active Substance: FUROSEMIDE
     Route: 065
     Dates: start: 20181005
  52. VITAMIN D [Concomitant]
     Active Substance: VITAMIN D NOS
     Route: 065
     Dates: start: 20181005
  53. DICLOFENAC [Concomitant]
     Active Substance: DICLOFENAC
     Route: 065
     Dates: start: 20181005
  54. CIPROFLOXACIN [Concomitant]
     Active Substance: CIPROFLOXACIN
     Route: 065
     Dates: start: 20140421
  55. FLAGYL [Concomitant]
     Active Substance: METRONIDAZOLE\METRONIDAZOLE HYDROCHLORIDE
     Route: 065
     Dates: start: 20140421
  56. HYDRALAZINE [Concomitant]
     Active Substance: HYDRALAZINE HYDROCHLORIDE
     Route: 065
     Dates: start: 20140421
  57. MORPHINE [Concomitant]
     Active Substance: MORPHINE
     Route: 065
     Dates: start: 20140421
  58. NICOTINE [Concomitant]
     Active Substance: NICOTINE
     Route: 065
     Dates: start: 20140421
  59. URTICA DIOICA/ACETYLCYSTEINE/THIOCTIC ACID/PORCINE KIDNEY/BROMELAINS/A [Concomitant]
     Route: 065
     Dates: start: 20140421
  60. MAGNESIUM HYDROXIDE [Concomitant]
     Active Substance: MAGNESIUM HYDROXIDE
     Route: 065
     Dates: start: 20140421
  61. OXYCODONE [Concomitant]
     Active Substance: OXYCODONE
     Route: 065
     Dates: start: 20140421
  62. SIMETHICONE (DIMETHICONE) [Concomitant]
     Active Substance: DIMETHICONE
     Route: 065
     Dates: start: 20140421
  63. ALVIMOPAN [Concomitant]
     Active Substance: ALVIMOPAN
     Route: 065
     Dates: start: 20140421
  64. NYSTATIN [Concomitant]
     Active Substance: NYSTATIN
     Route: 065
     Dates: start: 20140421
  65. LABETALOL [Concomitant]
     Active Substance: LABETALOL\LABETALOL HYDROCHLORIDE
     Route: 065
     Dates: start: 20140421
  66. MIRALAX [Concomitant]
     Active Substance: POLYETHYLENE GLYCOL 3350
     Route: 065
     Dates: start: 20140421
  67. ONDANSETRON [Concomitant]
     Active Substance: ONDANSETRON
     Route: 065
     Dates: start: 20140421
  68. VIMOVO [Concomitant]
     Active Substance: ESOMEPRAZOLE MAGNESIUM\NAPROXEN
     Route: 065
     Dates: start: 20160727
  69. ALBUTEROL [Concomitant]
     Active Substance: ALBUTEROL
     Route: 065
     Dates: start: 20160216
  70. ESMOLOL [Concomitant]
     Active Substance: ESMOLOL HYDROCHLORIDE
     Route: 065
     Dates: start: 20160216
  71. FAMOTIDINE [Concomitant]
     Active Substance: FAMOTIDINE
     Route: 065
     Dates: start: 20160216
  72. VASCEPA [Concomitant]
     Active Substance: ICOSAPENT ETHYL
     Route: 065
     Dates: start: 20160216
  73. MUPIROCIN [Concomitant]
     Active Substance: MUPIROCIN
     Route: 065
     Dates: start: 20170913
  74. PRECEDEX [Concomitant]
     Active Substance: DEXMEDETOMIDINE HYDROCHLORIDE
     Route: 065
     Dates: start: 20170913
  75. CEFTRIAXONE [Concomitant]
     Active Substance: CEFTRIAXONE
     Route: 065
     Dates: start: 20170913
  76. ATENOLOL [Concomitant]
     Active Substance: ATENOLOL
     Route: 065
     Dates: start: 20170913
  77. HYDROCHLOROTHIAZIDE [Concomitant]
     Active Substance: HYDROCHLOROTHIAZIDE
     Route: 065
     Dates: start: 20170913
  78. KETOCONAZOLE [Concomitant]
     Active Substance: KETOCONAZOLE
     Route: 065
     Dates: start: 20170913
  79. NAPROXEN SODIUM [Concomitant]
     Active Substance: NAPROXEN SODIUM
     Route: 065
     Dates: start: 20170913
  80. WELLBUTRIN [Concomitant]
     Active Substance: BUPROPION HYDROCHLORIDE
     Route: 065
     Dates: start: 20170913
  81. RAMIPRIL [Concomitant]
     Active Substance: RAMIPRIL
     Route: 065
     Dates: start: 20170913
  82. FENOFIBRATE [Concomitant]
     Active Substance: FENOFIBRATE
     Route: 065
     Dates: start: 20170913
  83. GABAPENTIN [Concomitant]
     Active Substance: GABAPENTIN
     Route: 065
     Dates: start: 20170913
  84. TRAMADOL [Concomitant]
     Active Substance: TRAMADOL
  85. ZOCOR [Concomitant]
     Active Substance: SIMVASTATIN
  86. HYDROCODONE [Concomitant]
     Active Substance: HYDROCODONE
  87. ACETAMINOPHEN\OXYCODONE HYDROCHLORIDE [Concomitant]
     Active Substance: ACETAMINOPHEN\OXYCODONE HYDROCHLORIDE
     Indication: Pain
     Dosage: 5-325 MG DAILY
     Route: 048
     Dates: start: 20190102
  88. CLINDAMYCIN [Concomitant]
     Active Substance: CLINDAMYCIN
     Dosage: 1% TOPICAL SOLUTION 60 ML
     Dates: start: 20161123
  89. DEPLIN [Concomitant]
     Active Substance: LEVOMEFOLATE CALCIUM
  90. LORATADINE [Concomitant]
     Active Substance: LORATADINE
  91. METOLAZONE [Concomitant]
     Active Substance: METOLAZONE
  92. BUDESONIDE\FORMOTEROL [Concomitant]
     Active Substance: BUDESONIDE\FORMOTEROL
  93. GUAIFENESIN [Concomitant]
     Active Substance: GUAIFENESIN
  94. SENNA [Concomitant]
     Active Substance: SENNA LEAF\SENNOSIDES\SENNOSIDES A AND B
  95. LACTULOSE [Concomitant]
     Active Substance: LACTULOSE
  96. DARBEPOETIN ALFA [Concomitant]
     Active Substance: DARBEPOETIN ALFA
  97. ALBUTEROL\IPRATROPIUM BROMIDE [Concomitant]
     Active Substance: ALBUTEROL\IPRATROPIUM BROMIDE
  98. RENAL CAPS [Concomitant]
  99. NITROFURANTOIN [Concomitant]
     Active Substance: NITROFURANTOIN
  100. PROTAMINE [Concomitant]
     Active Substance: PROTAMINE
  101. GINGER [Concomitant]
     Active Substance: GINGER
  102. KAYEXALATE [Concomitant]
     Active Substance: SODIUM POLYSTYRENE SULFONATE
  103. HIBICLENS [Concomitant]
     Active Substance: CHLORHEXIDINE GLUCONATE
  104. SODIUM CHLORIDE [Concomitant]
     Active Substance: SODIUM CHLORIDE
  105. PULMICORT TURBUHALER [Concomitant]
     Active Substance: BUDESONIDE
  106. NICARDIPINE [Concomitant]
     Active Substance: NICARDIPINE
  107. VALSARTAN [Concomitant]
     Active Substance: VALSARTAN
     Indication: Hypertension
     Dates: start: 2021, end: 2022
  108. HYDROCORTISONE [Concomitant]
     Active Substance: HYDROCORTISONE
     Indication: Pain
     Dates: start: 2017, end: 2022
  109. VITAMIN B [Concomitant]
     Active Substance: VITAMIN B
     Indication: Routine health maintenance
     Dates: start: 2017, end: 2022
  110. VITAMIN B12 [Concomitant]
     Active Substance: CYANOCOBALAMIN
     Indication: Routine health maintenance
     Dates: start: 2017, end: 2022
  111. HERBALS\TURMERIC [Concomitant]
     Active Substance: HERBALS\TURMERIC
     Indication: Routine health maintenance
     Dates: start: 2017, end: 2022
  112. VITAMIN E [Concomitant]
     Active Substance: .ALPHA.-TOCOPHEROL
     Indication: Routine health maintenance
     Dates: start: 2017, end: 2022
  113. VITAMIN C [Concomitant]
     Active Substance: ASCORBIC ACID
     Indication: Routine health maintenance
     Dates: start: 2017, end: 2022

REACTIONS (7)
  - Chronic kidney disease [Not Recovered/Not Resolved]
  - Acute kidney injury [Unknown]
  - Renal failure [Unknown]
  - Nephrogenic anaemia [Unknown]
  - Hyperparathyroidism secondary [Unknown]
  - End stage renal disease [Not Recovered/Not Resolved]
  - Tubulointerstitial nephritis [Unknown]

NARRATIVE: CASE EVENT DATE: 20120718
